FAERS Safety Report 14431654 (Version 2)
Quarter: 2018Q1

REPORT INFORMATION
  Report Type: Spontaneous
  Country: IE (occurrence: IE)
  Receive Date: 20180124
  Receipt Date: 20180223
  Transmission Date: 20180509
  Serious: Yes (Hospitalization, Other)
  Sender: FDA-Public Use
  Company Number: IE-BAYER-2017-234998

PATIENT
  Age: 68 Year
  Sex: Female

DRUGS (2)
  1. CIPROXIN [Suspect]
     Active Substance: CIPROFLOXACIN
     Indication: BRONCHITIS
     Dosage: 127.2 MG, UNK
     Route: 048
  2. CIPROXIN [Suspect]
     Active Substance: CIPROFLOXACIN
     Indication: LOWER RESPIRATORY TRACT INFECTION

REACTIONS (10)
  - Pain [None]
  - Liver injury [Unknown]
  - Hepatic enzyme increased [Not Recovered/Not Resolved]
  - Heart rate increased [Not Recovered/Not Resolved]
  - Vision blurred [None]
  - Myalgia [None]
  - Joint stiffness [Not Recovered/Not Resolved]
  - Renal injury [None]
  - Gait inability [None]
  - Neuropathy peripheral [Not Recovered/Not Resolved]
